FAERS Safety Report 9557419 (Version 1)
Quarter: 2013Q3

REPORT INFORMATION
  Report Type: Spontaneous
  Country: US (occurrence: None)
  Receive Date: 20130726
  Receipt Date: 20130726
  Transmission Date: 20140520
  Serious: Yes (Hospitalization)
  Sender: FDA-Public Use
  Company Number: UTC-019335

PATIENT
  Age: 24 Year
  Sex: Female
  Weight: 54.09 kg

DRUGS (5)
  1. REMODULIN [Suspect]
     Indication: COR PULMONALE CHRONIC
     Dosage: 1 IN 1 MIN
     Dates: start: 20090831
  2. REMODULIN [Suspect]
     Indication: PULMONARY HYPERTENSION
     Dosage: 1 IN 1 MIN
     Dates: start: 20090831
  3. COUMADIN (WARFARIN SODIUM) [Concomitant]
  4. REVATIO (SILDENAFIL CITRATE) [Concomitant]
  5. REVATIO (SILDENAFIL CITRATE) [Concomitant]

REACTIONS (3)
  - Device related infection [None]
  - Chest pain [None]
  - Sepsis [None]
